FAERS Safety Report 4317207-4 (Version None)
Quarter: 2004Q1

REPORT INFORMATION
  Report Type: 
  Country: None (occurrence: None)
  Receive Date: 20040312
  Receipt Date: 20040224
  Transmission Date: 20041129
  Serious: Yes (Hospitalization)
  Sender: FDA-Public Use
  Company Number: 186989

PATIENT
  Age: 55 Year
  Sex: Male
  Weight: 86.1834 kg

DRUGS (3)
  1. AVONEX [Suspect]
     Indication: MULTIPLE SCLEROSIS
     Dosage: 30 MCG QW IM
     Route: 030
     Dates: start: 20010601, end: 20030901
  2. IBUPROFEN [Concomitant]
  3. TYLENOL (CAPLET) [Concomitant]

REACTIONS (5)
  - BACK PAIN [None]
  - BLADDER DISORDER [None]
  - BONE CYST [None]
  - INTERVERTEBRAL DISC COMPRESSION [None]
  - INTESTINAL FUNCTIONAL DISORDER [None]
